FAERS Safety Report 10862824 (Version 1)
Quarter: 2015Q1

REPORT INFORMATION
  Report Type: Spontaneous
  Country: US (occurrence: None)
  Receive Date: 20150219
  Receipt Date: 20150219
  Transmission Date: 20150721
  Serious: Yes (Hospitalization)
  Sender: FDA-Public Use
  Company Number: US-ZYDUS-006606

PATIENT
  Age: 76 Year
  Sex: Male

DRUGS (9)
  1. SERTRALINE [Concomitant]
     Active Substance: SERTRALINE HYDROCHLORIDE
  2. MIRTAZAPINE (MIRTAZAPINE) [Suspect]
     Active Substance: MIRTAZAPINE
  3. VENLAFAXINE [Concomitant]
     Active Substance: VENLAFAXINE HYDROCHLORIDE
  4. GALANTAMINE (GALANTAMINE) [Concomitant]
  5. HALOPERIDOL (HALOPERIDOL) (HALOPERIDOL) [Suspect]
     Active Substance: HALOPERIDOL
     Indication: PSYCHOTIC DISORDER
  6. QUETIAPINE (QUETIAPINE) [Concomitant]
     Active Substance: QUETIAPINE
  7. RISPERIDONE (RISPERIDONE) [Suspect]
     Active Substance: RISPERIDONE
  8. OLANZAPINE (OLANZAPINE) [Suspect]
     Active Substance: OLANZAPINE
     Indication: PSYCHOTIC DISORDER
  9. ARIPIPRAZOLE (ARIPIPRAZOLE) [Concomitant]
     Active Substance: ARIPIPRAZOLE

REACTIONS (6)
  - Hypotension [None]
  - Depression [None]
  - Extrapyramidal disorder [None]
  - Somnambulism [None]
  - Drug ineffective [None]
  - Akathisia [None]
